FAERS Safety Report 9064710 (Version 2)
Quarter: 2013Q3

REPORT INFORMATION
  Report Type: Report from Study
  Country: ES (occurrence: ES)
  Receive Date: 20130213
  Receipt Date: 20130815
  Transmission Date: 20140515
  Serious: Yes (Other)
  Sender: FDA-Public Use
  Company Number: ES-ABBOTT-10P-144-0650724-00

PATIENT
  Age: 22 Year
  Sex: Male
  Weight: 76 kg

DRUGS (2)
  1. HUMIRA [Suspect]
     Indication: CROHN^S DISEASE
     Route: 058
     Dates: start: 20090710, end: 20100410
  2. HUMIRA [Suspect]
     Route: 058
     Dates: start: 20110819

REACTIONS (1)
  - Testis cancer [Recovered/Resolved]
